FAERS Safety Report 10251653 (Version 2)
Quarter: 2014Q2

REPORT INFORMATION
  Report Type: Spontaneous
  Country: US (occurrence: US)
  Receive Date: 20140623
  Receipt Date: 20140623
  Transmission Date: 20141212
  Serious: Yes (Other)
  Sender: FDA-Public Use
  Company Number: US-BIOGENIDEC-2006BI017850

PATIENT
  Age: 51 Year
  Sex: Female

DRUGS (3)
  1. AVONEX [Suspect]
     Indication: MULTIPLE SCLEROSIS
     Route: 030
     Dates: start: 1998, end: 2003
  2. AVONEX [Suspect]
     Indication: MULTIPLE SCLEROSIS
     Route: 030
     Dates: start: 2003, end: 20061118
  3. CLINORIL [Concomitant]

REACTIONS (6)
  - Hysterectomy [Unknown]
  - Cardiac failure congestive [Recovered/Resolved]
  - Stress [Unknown]
  - Upper respiratory tract infection [Unknown]
  - Palpitations [Unknown]
  - Tension headache [Unknown]
